FAERS Safety Report 20193699 (Version 1)
Quarter: 2021Q4

REPORT INFORMATION
  Report Type: Spontaneous
  Country: CA (occurrence: CA)
  Receive Date: 20211216
  Receipt Date: 20211216
  Transmission Date: 20220303
  Serious: Yes (Other)
  Sender: FDA-Public Use
  Company Number: CA-SAMSUNG BIOEPIS-SB-2021-28371

PATIENT
  Age: 69 Year
  Sex: Female
  Weight: 90 kg

DRUGS (1)
  1. INFLIXIMAB [Suspect]
     Active Substance: INFLIXIMAB
     Indication: Crohn^s disease
     Route: 041

REACTIONS (7)
  - Anal fissure haemorrhage [Recovered/Resolved]
  - Constipation [Recovered/Resolved]
  - Erythema [Recovered/Resolved]
  - Faeces discoloured [Recovered/Resolved]
  - Haemorrhoidal haemorrhage [Recovered/Resolved]
  - Lip pain [Recovered/Resolved]
  - Pruritus [Recovered/Resolved]
